FAERS Safety Report 4302460-3 (Version None)
Quarter: 2004Q1

REPORT INFORMATION
  Report Type: 
  Country: None (occurrence: None)
  Receive Date: 20040218
  Receipt Date: 20031210
  Transmission Date: 20041129
  Serious: Yes (Other)
  Sender: FDA-Public Use
  Company Number: 200320383US

PATIENT
  Age: 21 Year
  Sex: Female

DRUGS (4)
  1. LANTUS [Suspect]
     Indication: DIABETES MELLITUS INSULIN-DEPENDENT
     Dosage: 40 U HS
     Dates: start: 20031206
  2. ISOPHANE INSULIN [Concomitant]
  3. NOVOLOG [Concomitant]
  4. ASTHMA MEDICATIONS NOS [Concomitant]

REACTIONS (2)
  - BLOOD GLUCOSE DECREASED [None]
  - CONVULSION [None]
